FAERS Safety Report 4713954-0 (Version None)
Quarter: 2005Q3

REPORT INFORMATION
  Report Type: 
  Country: None (occurrence: None)
  Receive Date: 20050712
  Receipt Date: 20050624
  Transmission Date: 20060218
  Serious: Yes (Other)
  Sender: FDA-Public Use
  Company Number: EWC050644674

PATIENT
  Age: 60 Year
  Sex: Female

DRUGS (2)
  1. ZYPREXA [Suspect]
     Indication: MANIA
     Dosage: 10 MG DAY
     Dates: start: 20030911, end: 20031230
  2. PREDNISOLONE [Concomitant]

REACTIONS (3)
  - BRUXISM [None]
  - PAIN IN JAW [None]
  - TRISMUS [None]
